FAERS Safety Report 9759873 (Version 2)
Quarter: 2013Q4

REPORT INFORMATION
  Report Type: Report from Study
  Country: GB (occurrence: GB)
  Receive Date: 20131216
  Receipt Date: 20131223
  Transmission Date: 20140711
  Serious: Yes (Hospitalization, Other)
  Sender: FDA-Public Use
  Company Number: GB-GILEAD-2013-0089541

PATIENT
  Age: 56 Year
  Sex: Male
  Weight: 78 kg

DRUGS (21)
  1. EMTRICITABINE/TENOFOVIR DISOPROXIL FUMARATE [Suspect]
     Indication: HIV INFECTION
     Dosage: 1 DF, QD
     Route: 048
     Dates: start: 20080205
  2. DOXYCYCLINE [Concomitant]
     Route: 048
  3. TESTOGEL [Concomitant]
  4. MACROGOL [Concomitant]
     Route: 048
  5. CALCICHEW [Concomitant]
     Route: 048
  6. LACRI-LUBE [Concomitant]
     Route: 047
  7. CARMELLOSE SODIUM [Concomitant]
     Route: 047
  8. SYMBICORT [Concomitant]
     Dosage: UNK
     Route: 055
     Dates: start: 1988
  9. ETRAVIRINE [Concomitant]
     Dosage: UNK
     Route: 048
     Dates: start: 20071016
  10. AZITHROMYCIN [Concomitant]
     Route: 048
  11. MEBEVERINE [Concomitant]
     Route: 048
  12. PEPPERMINT OIL [Concomitant]
     Route: 048
  13. MIRTAZAPINE [Concomitant]
     Dosage: UNK
     Route: 048
     Dates: start: 2006
  14. GABAPENTIN [Concomitant]
     Dosage: UNK
     Dates: start: 2001
  15. ZOMORPH [Concomitant]
     Route: 048
  16. CELECOXIB [Concomitant]
     Dosage: UNK
     Route: 048
     Dates: start: 2012
  17. OMEPRAZOLE [Concomitant]
     Route: 048
  18. LEVOTHYROXINE [Concomitant]
     Dosage: UNK
     Route: 048
     Dates: start: 1997
  19. PANCREATIN [Concomitant]
     Dosage: UNK
     Route: 048
     Dates: start: 2001
  20. CETIRIZINE [Concomitant]
     Dosage: UNK
     Route: 048
     Dates: start: 1998
  21. METFORMIN [Concomitant]
     Dosage: UNK
     Route: 048
     Dates: start: 201304

REACTIONS (2)
  - Lower respiratory tract infection [Recovered/Resolved]
  - Syncope [Recovered/Resolved]
